FAERS Safety Report 4870123-1 (Version None)
Quarter: 2005Q4

REPORT INFORMATION
  Report Type: 
  Country: None (occurrence: None)
  Receive Date: 20051228
  Receipt Date: 20051207
  Transmission Date: 20060501
  Serious: Yes (Other)
  Sender: FDA-Public Use
  Company Number: US_0505117325

PATIENT
  Age: 40 Year
  Sex: Male
  Weight: 106.4 kg

DRUGS (8)
  1. ZYPREXA [Suspect]
     Indication: NIGHTMARE
     Dosage: 2 MG, EACH EVENING, ORAL; 5 MG, EACH EVENING; 7.5 MG, EACH EVENING
     Route: 048
     Dates: start: 20010814, end: 20011206
  2. ZYPREXA [Suspect]
     Indication: NIGHTMARE
     Dosage: 2 MG, EACH EVENING, ORAL; 5 MG, EACH EVENING; 7.5 MG, EACH EVENING
     Route: 048
     Dates: start: 20011206, end: 20020201
  3. ZYPREXA [Suspect]
     Indication: NIGHTMARE
     Dosage: 2 MG, EACH EVENING, ORAL; 5 MG, EACH EVENING; 7.5 MG, EACH EVENING
     Route: 048
     Dates: start: 20020201, end: 20020311
  4. PINDOLOL [Concomitant]
  5. ZITHROMAX [Concomitant]
  6. PHENERGAN (PROMETHAZINE HYDROCHLORIDE) [Concomitant]
  7. LOMOTIL [Concomitant]
  8. ARIPIPRAZOLE (ARIPIPRAZOLE) [Concomitant]

REACTIONS (9)
  - BLOOD CHOLESTEROL ABNORMAL [None]
  - BLOOD TRIGLYCERIDES INCREASED [None]
  - DIABETES MELLITUS [None]
  - HEPATIC ENZYME INCREASED [None]
  - HEPATIC STEATOSIS [None]
  - HYPERGLYCAEMIA [None]
  - HYPERTENSIVE HEART DISEASE [None]
  - LOSS OF CONSCIOUSNESS [None]
  - TREMOR [None]
